FAERS Safety Report 7428761-8 (Version None)
Quarter: 2011Q2

REPORT INFORMATION
  Report Type: 
  Country: None (occurrence: None)
  Receive Date: 20110421
  Receipt Date: 20110412
  Transmission Date: 20111010
  Serious: Yes (Other)
  Sender: FDA-Public Use
  Company Number: UA-PFIZER INC-2011086171

PATIENT
  Age: 37 Year
  Sex: Male

DRUGS (2)
  1. ATARAX [Suspect]
     Indication: WITHDRAWAL SYNDROME
     Dosage: 25 MG, 2X/DAY
     Route: 048
     Dates: start: 20110321, end: 20110405
  2. ATARAX [Suspect]
     Dosage: UNK
     Dates: start: 20110411

REACTIONS (1)
  - IRRITABILITY [None]
